FAERS Safety Report 5227737-9 (Version None)
Quarter: 2007Q1

REPORT INFORMATION
  Report Type: 
  Country: None (occurrence: None)
  Receive Date: 20070202
  Receipt Date: 20070125
  Transmission Date: 20070707
  Serious: Yes (Other)
  Sender: FDA-Public Use
  Company Number: JP-PFIZER INC-2007008038

PATIENT
  Age: 43 Year
  Sex: Female

DRUGS (4)
  1. ZOLOFT [Suspect]
     Indication: DEPRESSION
     Dosage: DAILY DOSE:100MG
     Route: 048
     Dates: start: 20061116, end: 20061203
  2. TRYPTANOL [Concomitant]
     Route: 048
  3. SEROQUEL [Concomitant]
     Route: 048
  4. INDERAL [Concomitant]

REACTIONS (3)
  - FALL [None]
  - FOOT FRACTURE [None]
  - LOSS OF CONSCIOUSNESS [None]
